FAERS Safety Report 23957222 (Version 1)
Quarter: 2024Q2

REPORT INFORMATION
  Report Type: Spontaneous
  Country: CN (occurrence: CN)
  Receive Date: 20240610
  Receipt Date: 20240610
  Transmission Date: 20240715
  Serious: Yes (Other)
  Sender: FDA-Public Use
  Company Number: CN-PFIZER INC-PV202400073353

PATIENT
  Age: 34 Year
  Sex: Female

DRUGS (3)
  1. PALBOCICLIB [Suspect]
     Active Substance: PALBOCICLIB
     Indication: Small cell carcinoma
     Dosage: 100 MG, 1X/DAY
     Dates: start: 202209
  2. DURVALUMAB [Concomitant]
     Active Substance: DURVALUMAB
     Indication: Small cell carcinoma
     Dosage: 1000 MG, Q21D
     Dates: start: 202209
  3. LENVATINIB [Concomitant]
     Active Substance: LENVATINIB
     Indication: Small cell carcinoma
     Dosage: 8 MG, 1X/DAY
     Dates: start: 202209

REACTIONS (1)
  - Myelosuppression [Unknown]

NARRATIVE: CASE EVENT DATE: 20221001
